FAERS Safety Report 8597052-4 (Version None)
Quarter: 2012Q3

REPORT INFORMATION
  Report Type: 
  Country: None (occurrence: None)
  Receive Date: 20120816
  Receipt Date: 20120807
  Transmission Date: 20120928
  Serious: Yes (Other)
  Sender: FDA-Public Use
  Company Number: US-BIOGENIDEC-2011BI020541

PATIENT
  Age: 51 Year
  Sex: Female

DRUGS (1)
  1. TYSABRI [Suspect]
     Indication: MULTIPLE SCLEROSIS
     Route: 042
     Dates: start: 20071113, end: 20120718

REACTIONS (5)
  - UHTHOFF'S PHENOMENON [None]
  - MULTIPLE SCLEROSIS RELAPSE [None]
  - CERVIX CARCINOMA STAGE II [None]
  - ENDOMETRIAL HYPERPLASIA [None]
  - PRECANCEROUS CELLS PRESENT [None]
